FAERS Safety Report 7929991 (Version 20)
Quarter: 2012Q4

REPORT INFORMATION
  Report Type: 
  Country: US (occurrence: US)
  Receive Date: 20110504
  Receipt Date: 20121030
  Transmission Date: 20130627
  Serious: Yes (Other)
  Sender: FDA-Public Use
  Company Number: PHEH2011US00479

PATIENT
  Age: 50 None
  Sex: Female

DRUGS (13)
  1. ZOMETA [Suspect]
     Indication: OSTEOPOROSIS
     Dosage: 4 mg, QMO
  2. OXYCONTIN [Concomitant]
     Dosage: 80 mg,
  3. CELEBREX [Concomitant]
     Dosage: 200 mg, BID
  4. TOPAMAX [Concomitant]
  5. BACLOFEN [Concomitant]
  6. NEXIUM [Concomitant]
  7. DIOVAN HCT [Concomitant]
     Dosage: 1 DF(80/12.5 mg PRN)
  8. COMPAZINE [Concomitant]
     Dosage: 10 mg, PRN
  9. REGLAN [Concomitant]
     Dosage: 10 mg, TID
  10. PROTONIX ^PHARMACIA^ [Concomitant]
     Dosage: 40 mg, QD
  11. METFORMIN [Concomitant]
     Dosage: 500 mg, BID
     Route: 048
  12. PHENERGAN [Concomitant]
     Dosage: 25 mg, BID
     Route: 048
  13. AMBIEN [Concomitant]
     Dosage: 10 mg, QD
     Route: 048

REACTIONS (100)
  - Myocardial infarction [Unknown]
  - Small intestinal obstruction [Unknown]
  - Ileus [Unknown]
  - Arrhythmia [Unknown]
  - Oedema peripheral [Unknown]
  - Bone cancer [Unknown]
  - Gastrointestinal tract adenoma [Unknown]
  - Insomnia [Unknown]
  - Gait disturbance [Unknown]
  - Tenosynovitis stenosans [Unknown]
  - Tendonitis [Unknown]
  - Mucosal inflammation [Unknown]
  - Narcotic bowel syndrome [Unknown]
  - Ovarian cyst [Unknown]
  - Arteriosclerosis coronary artery [Unknown]
  - Abdominal pain upper [Unknown]
  - Urinary tract infection [Unknown]
  - Constipation [Unknown]
  - Rash [Unknown]
  - Weight increased [Unknown]
  - Dizziness [Unknown]
  - Bursitis [Unknown]
  - Purpura [Unknown]
  - Vitamin B1 deficiency [Unknown]
  - Dysphagia [Unknown]
  - Abdominal pain [Unknown]
  - Nausea [Unknown]
  - Arthralgia [Unknown]
  - Muscle spasms [Unknown]
  - Burning sensation [Unknown]
  - Paraesthesia [Unknown]
  - Pain in extremity [Unknown]
  - Osteonecrosis of jaw [Unknown]
  - Pain [Unknown]
  - Infection [Unknown]
  - Deformity [Unknown]
  - Injury [Unknown]
  - Emotional distress [Unknown]
  - Anxiety [Unknown]
  - Jaw fracture [Unknown]
  - Mouth ulceration [Unknown]
  - Mucoepidermoid carcinoma [Unknown]
  - Oral neoplasm [Unknown]
  - Ovarian cancer stage I [Unknown]
  - Irritable bowel syndrome [Unknown]
  - Fibromyalgia [Unknown]
  - Chondromalacia [Unknown]
  - Migraine [Unknown]
  - Spinal osteoarthritis [Unknown]
  - Carpal tunnel syndrome [Unknown]
  - Nephrolithiasis [Unknown]
  - Cystitis [Unknown]
  - Joint swelling [Unknown]
  - Tremor [Unknown]
  - Depression [Unknown]
  - Hiatus hernia [Unknown]
  - Oesophageal stenosis [Unknown]
  - Gastritis erosive [Unknown]
  - Acquired oesophageal web [Unknown]
  - Cardiomegaly [Unknown]
  - Diabetes mellitus [Unknown]
  - Vision blurred [Unknown]
  - Glaucoma [Unknown]
  - Oesophageal dilatation [Unknown]
  - Breast mass [Unknown]
  - Pancreatic carcinoma [Unknown]
  - Hepatic steatosis [Unknown]
  - Melanocytic naevus [Unknown]
  - Haemangioma [Unknown]
  - Folliculitis [Unknown]
  - Dermatitis contact [Unknown]
  - Seborrhoeic keratosis [Unknown]
  - Keratosis pilaris [Unknown]
  - Gastrooesophageal reflux disease [Unknown]
  - Morton^s neuroma [Unknown]
  - Chronic obstructive pulmonary disease [Unknown]
  - Coronary artery disease [Unknown]
  - Sinusitis [Unknown]
  - Renal failure acute [Unknown]
  - Head and neck cancer [Unknown]
  - Exposed bone in jaw [Unknown]
  - Intervertebral disc degeneration [Unknown]
  - Scoliosis [Unknown]
  - Hydronephrosis [Unknown]
  - Squamous cell carcinoma of the oral cavity [Unknown]
  - Sciatica [Unknown]
  - Spinal column stenosis [Unknown]
  - Intervertebral disc space narrowing [Unknown]
  - Facet joint syndrome [Unknown]
  - Neuritis [Unknown]
  - Osteoarthritis [Unknown]
  - Intervertebral disc protrusion [Unknown]
  - Cervical spine flattening [Unknown]
  - Spondylolisthesis [Unknown]
  - Radiculitis cervical [Unknown]
  - Lymphadenopathy [Unknown]
  - Atelectasis [Unknown]
  - Fibrosis [Unknown]
  - Gout [Unknown]
  - Osteomyelitis [Unknown]
